FAERS Safety Report 8960019 (Version 2)
Quarter: 2013Q1

REPORT INFORMATION
  Report Type: Spontaneous
  Country: US (occurrence: US)
  Receive Date: 20121212
  Receipt Date: 20130122
  Transmission Date: 20140127
  Serious: Yes (Hospitalization, Other)
  Sender: FDA-Public Use
  Company Number: US-BAYER-2012-129106

PATIENT
  Age: 28 Year
  Sex: Female

DRUGS (4)
  1. YASMIN [Suspect]
     Indication: CONTRACEPTION
     Dosage: UNK
     Dates: start: 200912, end: 201002
  2. YAZ [Suspect]
     Dosage: UNK
     Dates: start: 200911, end: 200912
  3. OCELLA [Suspect]
     Dosage: UNK
     Dates: start: 201002, end: 201102
  4. GIANVI [Suspect]

REACTIONS (11)
  - Cholecystitis chronic [None]
  - Pulmonary embolism [None]
  - Pelvic venous thrombosis [Recovering/Resolving]
  - Deep vein thrombosis [None]
  - Deep vein thrombosis [None]
  - Injury [None]
  - Pain [None]
  - Depression [None]
  - Emotional distress [None]
  - Fear of death [None]
  - Nervousness [None]
